FAERS Safety Report 24955842 (Version 2)
Quarter: 2025Q1

REPORT INFORMATION
  Report Type: Spontaneous
  Country: DE (occurrence: DE)
  Receive Date: 20250211
  Receipt Date: 20250306
  Transmission Date: 20250409
  Serious: Yes (Hospitalization, Other)
  Sender: SANOFI AVENTIS
  Company Number: DE-MACLEODS PHARMA-MAC2025051034

PATIENT
  Age: 78 Year
  Sex: Male

DRUGS (11)
  1. PANTOPRAZOLE [Suspect]
     Active Substance: PANTOPRAZOLE
  2. ESOMEPRAZOLE [Suspect]
     Active Substance: ESOMEPRAZOLE
  3. TAMSULOSIN HYDROCHLORIDE [Suspect]
     Active Substance: TAMSULOSIN HYDROCHLORIDE
     Indication: Prostate cancer
  4. TAMSULOSIN HYDROCHLORIDE [Suspect]
     Active Substance: TAMSULOSIN HYDROCHLORIDE
     Indication: Metastases to bone
  5. METAMIZOLE [Suspect]
     Active Substance: METAMIZOLE
  6. MIRTAZAPINE [Suspect]
     Active Substance: MIRTAZAPINE
  7. ENZALUTAMIDE [Suspect]
     Active Substance: ENZALUTAMIDE
     Indication: Prostate cancer
  8. ENZALUTAMIDE [Suspect]
     Active Substance: ENZALUTAMIDE
     Indication: Metastases to bone
  9. DENOSUMAB [Suspect]
     Active Substance: DENOSUMAB
     Indication: Resorption bone increased
  10. LEUPROLIDE ACETATE [Suspect]
     Active Substance: LEUPROLIDE ACETATE
     Indication: Prostate cancer
  11. LEUPROLIDE ACETATE [Suspect]
     Active Substance: LEUPROLIDE ACETATE
     Indication: Metastases to bone

REACTIONS (10)
  - Mixed liver injury [Recovering/Resolving]
  - Cholestasis [Recovering/Resolving]
  - Inflammation [Recovering/Resolving]
  - Hepatotoxicity [Recovering/Resolving]
  - Drug-induced liver injury [Recovering/Resolving]
  - Haematemesis [Recovering/Resolving]
  - Oesophageal ulcer haemorrhage [Recovering/Resolving]
  - Shock haemorrhagic [Recovering/Resolving]
  - Acute hepatic failure [Recovering/Resolving]
  - Hypocalcaemia [Recovered/Resolved]
